FAERS Safety Report 8507297-7 (Version None)
Quarter: 2012Q3

REPORT INFORMATION
  Report Type: 
  Country: None (occurrence: None)
  Receive Date: 20120712
  Receipt Date: 20120706
  Transmission Date: 20120928
  Serious: Yes (Other)
  Sender: FDA-Public Use
  Company Number: JP-ROCHE-753232

PATIENT
  Sex: Female
  Weight: 44.6 kg

DRUGS (18)
  1. ACTEMRA [Suspect]
     Route: 041
     Dates: start: 20080909, end: 20080909
  2. ACTEMRA [Suspect]
     Route: 041
     Dates: start: 20081202, end: 20081202
  3. ACTEMRA [Suspect]
     Route: 041
     Dates: start: 20090303, end: 20090303
  4. ACTEMRA [Suspect]
     Route: 041
     Dates: start: 20080812, end: 20080812
  5. ACTEMRA [Suspect]
     Route: 041
     Dates: start: 20081007, end: 20081007
  6. ACTEMRA [Suspect]
     Route: 041
     Dates: start: 20090611, end: 20090611
  7. ACTEMRA [Suspect]
     Route: 041
     Dates: start: 20081104, end: 20081104
  8. ACTEMRA [Suspect]
     Dosage: ACTION TAKEN: DISCONTINUED
     Route: 041
     Dates: start: 20090331, end: 20090331
  9. ACTEMRA [Suspect]
     Route: 041
     Dates: start: 20090512, end: 20090512
  10. ACTEMRA [Suspect]
     Dosage: INFUSION RATE DECREASED
     Route: 041
  11. PREDNISOLONE [Concomitant]
     Dosage: DOSE FORM: PERORAL AGENT
     Route: 048
  12. ACTEMRA [Suspect]
     Dosage: DRUG WITHDRAWN
     Route: 041
     Dates: start: 20090806, end: 20100121
  13. LOXONIN [Concomitant]
     Route: 048
  14. ACTEMRA [Suspect]
     Indication: RHEUMATOID ARTHRITIS
     Route: 041
     Dates: start: 20080715, end: 20080715
  15. ACTEMRA [Suspect]
     Route: 041
     Dates: start: 20081229, end: 20081229
  16. ACTEMRA [Suspect]
     Route: 041
     Dates: start: 20090127, end: 20090127
  17. ACTEMRA [Suspect]
     Route: 041
     Dates: start: 20090709, end: 20090709
  18. FAMOTIDINE [Concomitant]
     Route: 048

REACTIONS (2)
  - ARTHRODESIS [None]
  - OROPHARYNGEAL PAIN [None]
